FAERS Safety Report 10853518 (Version 1)
Quarter: 2015Q1

REPORT INFORMATION
  Report Type: Spontaneous
  Country: US (occurrence: US)
  Receive Date: 20150222
  Receipt Date: 20150222
  Transmission Date: 20150721
  Serious: No
  Sender: FDA-Public Use
  Company Number: US-ALLERGAN-1424179US

PATIENT
  Age: 69 Year
  Sex: Female

DRUGS (5)
  1. BOTOX [Suspect]
     Active Substance: ONABOTULINUMTOXINA
     Indication: TORTICOLLIS
     Dosage: 160 UNITS, SINGLE
     Route: 030
     Dates: start: 20140825, end: 20140825
  2. LORTAB [Concomitant]
     Active Substance: ACETAMINOPHEN\HYDROCODONE BITARTRATE
     Indication: ANXIETY
     Dosage: UNK
     Dates: start: 2007
  3. LEVOTHYROXINE [Concomitant]
     Active Substance: LEVOTHYROXINE
     Indication: THYROIDECTOMY
     Dosage: 25 ?G, QD
     Route: 048
     Dates: start: 2007
  4. PREDNISONE. [Concomitant]
     Active Substance: PREDNISONE
     Indication: ARTHRITIS
     Dosage: 10 MG, QAM, PRN
  5. PREDNISONE. [Concomitant]
     Active Substance: PREDNISONE
     Dosage: 5 MG, QPM, PRN

REACTIONS (14)
  - Pharyngeal oedema [Unknown]
  - Headache [Not Recovered/Not Resolved]
  - Immune system disorder [Unknown]
  - Dyskinesia [Not Recovered/Not Resolved]
  - Drug ineffective [Unknown]
  - Dysphagia [Unknown]
  - Thyroxine abnormal [Unknown]
  - Tongue paralysis [Unknown]
  - Torticollis [Unknown]
  - Tri-iodothyronine free abnormal [Unknown]
  - Asthenia [Not Recovered/Not Resolved]
  - Speech disorder [Unknown]
  - Gait disturbance [Not Recovered/Not Resolved]
  - Laryngitis [Unknown]

NARRATIVE: CASE EVENT DATE: 20140826
